FAERS Safety Report 21838526 (Version 1)
Quarter: 2023Q1

REPORT INFORMATION
  Report Type: Spontaneous
  Country: US (occurrence: None)
  Receive Date: 20230108
  Receipt Date: 20230108
  Transmission Date: 20230418
  Serious: Yes (Other)
  Sender: FDA-Public Use
  Company Number: None

PATIENT
  Age: 77 Year
  Sex: Male
  Weight: 81 kg

DRUGS (1)
  1. RYBELSUS [Suspect]
     Active Substance: SEMAGLUTIDE
     Indication: Type 2 diabetes mellitus
     Dosage: OTHER QUANTITY : 100 OUNCE(S);?OTHER FREQUENCY : ONE YGIMR PER WEEK;?
     Route: 030

REACTIONS (4)
  - Constipation [None]
  - Weight decreased [None]
  - Muscle atrophy [None]
  - Testicular disorder [None]

NARRATIVE: CASE EVENT DATE: 20170101
